FAERS Safety Report 7017565-6 (Version None)
Quarter: 2010Q3

REPORT INFORMATION
  Report Type: 
  Country: None (occurrence: None)
  Receive Date: 20100928
  Receipt Date: 20100607
  Transmission Date: 20110219
  Serious: No
  Sender: FDA-Public Use
  Company Number: US-MYLANLABS-2010S1010143

PATIENT
  Age: 48 Year
  Sex: Female

DRUGS (3)
  1. TOPIRAMATE TABLETS [Suspect]
     Indication: MIGRAINE PROPHYLAXIS
     Route: 048
     Dates: start: 20100601, end: 20100607
  2. ZOMIG [Concomitant]
  3. PHENERGAN [Concomitant]

REACTIONS (4)
  - DIZZINESS [None]
  - DRUG INEFFECTIVE FOR UNAPPROVED INDICATION [None]
  - MIGRAINE [None]
  - NAUSEA [None]
